FAERS Safety Report 23750872 (Version 1)
Quarter: 2024Q2

REPORT INFORMATION
  Report Type: Spontaneous
  Country: US (occurrence: US)
  Receive Date: 20240417
  Receipt Date: 20240417
  Transmission Date: 20240715
  Serious: No
  Sender: FDA-Public Use
  Company Number: US-JNJFOC-20240389324

PATIENT
  Sex: Female

DRUGS (1)
  1. MENS ROGAINE EXTRA STRENGTH [Suspect]
     Active Substance: MINOXIDIL
     Indication: Product used for unknown indication
     Route: 065

REACTIONS (6)
  - Skin disorder [Unknown]
  - Application site dryness [Unknown]
  - Product use issue [Unknown]
  - Intentional product misuse [Unknown]
  - Product formulation issue [Unknown]
  - Poor quality product administered [Unknown]
